FAERS Safety Report 8605136-7 (Version None)
Quarter: 2012Q3

REPORT INFORMATION
  Report Type: 
  Country: None (occurrence: None)
  Receive Date: 20120820
  Receipt Date: 20120816
  Transmission Date: 20120928
  Serious: Yes (Hospitalization)
  Sender: FDA-Public Use
  Company Number: JP-PFIZER INC-2012187393

PATIENT
  Age: 74 Year
  Sex: Female

DRUGS (4)
  1. EPLERENONE [Suspect]
     Dosage: 50 MG, 1X/DAY
     Route: 048
     Dates: start: 20120225, end: 20120722
  2. OLMESARTAN MEDOXOMIL [Concomitant]
  3. ALFAROL [Concomitant]
  4. CALBLOCK [Concomitant]

REACTIONS (1)
  - HYPONATRAEMIA [None]
